FAERS Safety Report 12453158 (Version 2)
Quarter: 2016Q4

REPORT INFORMATION
  Report Type: Spontaneous
  Country: US (occurrence: US)
  Receive Date: 20160609
  Receipt Date: 20161004
  Transmission Date: 20170207
  Serious: No
  Sender: FDA-Public Use
  Company Number: US-BRISTOL-MYERS SQUIBB COMPANY-BMS-2016-044962

PATIENT
  Sex: Female

DRUGS (2)
  1. SPRYCEL [Suspect]
     Active Substance: DASATINIB
     Dosage: 20 MG, QD: ONCE EVERY THREE DAYS
     Route: 048
     Dates: start: 20150331
  2. SPRYCEL [Suspect]
     Active Substance: DASATINIB
     Indication: CHRONIC MYELOID LEUKAEMIA
     Dosage: 20 MG, QD; ONCE EVERY THREE DAYS
     Route: 048
     Dates: start: 20150911

REACTIONS (2)
  - Headache [Unknown]
  - Off label use [Unknown]
